FAERS Safety Report 10029742 (Version 1)
Quarter: 2014Q1

REPORT INFORMATION
  Report Type: Spontaneous
  Country: US (occurrence: None)
  Receive Date: 20140321
  Receipt Date: 20140321
  Transmission Date: 20141002
  Serious: Yes (Other)
  Sender: FDA-Public Use
  Company Number: None

PATIENT
  Age: 67 Year
  Sex: Female

DRUGS (1)
  1. ENBREL SURECLICK [Suspect]
     Route: 058
     Dates: start: 20140211

REACTIONS (2)
  - Local swelling [None]
  - Blood potassium decreased [None]
